FAERS Safety Report 16752068 (Version 1)
Quarter: 2019Q3

REPORT INFORMATION
  Report Type: Spontaneous
  Country: US (occurrence: US)
  Receive Date: 20190828
  Receipt Date: 20190828
  Transmission Date: 20191005
  Serious: Yes (Other)
  Sender: FDA-Public Use
  Company Number: US-TEVA-2019-US-1100241

PATIENT
  Sex: Male

DRUGS (1)
  1. TESTOSTERONE GEL TEVA [Suspect]
     Active Substance: TESTOSTERONE
     Indication: HORMONE THERAPY
     Route: 065
     Dates: start: 20190715, end: 20190815

REACTIONS (5)
  - Product substitution issue [Unknown]
  - Suicidal ideation [Recovered/Resolved]
  - Depression [Recovered/Resolved]
  - Crying [Recovered/Resolved]
  - Feeling of despair [Recovered/Resolved]

NARRATIVE: CASE EVENT DATE: 201907
